FAERS Safety Report 7002110-1 (Version None)
Quarter: 2010Q3

REPORT INFORMATION
  Report Type: 
  Country: None (occurrence: None)
  Receive Date: 20100920
  Receipt Date: 20080107
  Transmission Date: 20110219
  Serious: Yes (Other)
  Sender: FDA-Public Use
  Company Number: US-ASTRAZENECA-2006UW22830

PATIENT
  Age: 53 Year
  Sex: Female
  Weight: 87.1 kg

DRUGS (18)
  1. SEROQUEL [Suspect]
     Indication: DEPRESSION
     Dosage: 50MG -200MG
     Route: 048
     Dates: start: 20020709
  2. SEROQUEL [Suspect]
     Indication: BIPOLAR DISORDER
     Dosage: 50MG -200MG
     Route: 048
     Dates: start: 20020709
  3. SEROQUEL [Suspect]
     Indication: ANXIETY
     Dosage: 50MG -200MG
     Route: 048
     Dates: start: 20020709
  4. SEROQUEL [Suspect]
     Route: 048
     Dates: start: 20030101, end: 20060101
  5. SEROQUEL [Suspect]
     Route: 048
     Dates: start: 20030101, end: 20060101
  6. SEROQUEL [Suspect]
     Route: 048
     Dates: start: 20030101, end: 20060101
  7. GEODON [Concomitant]
     Dates: start: 19980101
  8. RISPERDAL [Concomitant]
  9. ZYPREXA [Concomitant]
     Dates: start: 20000101
  10. KLONOPIN [Concomitant]
     Dates: start: 20020726
  11. TOPAMAX [Concomitant]
     Dosage: 100MG -200MG
     Dates: start: 20030303
  12. EFFEXOR [Concomitant]
     Dosage: 75MG - 225MG
     Dates: start: 20010225
  13. REMERON [Concomitant]
     Dosage: 30MG -60 MG
     Dates: start: 20040213
  14. LEXAPRO [Concomitant]
     Dates: start: 20030923
  15. PREMARIN [Concomitant]
     Dates: start: 20040213
  16. NEURONTIN [Concomitant]
     Dates: start: 20020726
  17. TRAZODONE HCL [Concomitant]
     Dates: start: 20010225
  18. HYDROCHLOROTHIAZIDE [Concomitant]
     Dosage: 25MG -50MG
     Dates: start: 20030303

REACTIONS (4)
  - BLOOD CHOLESTEROL INCREASED [None]
  - DIABETES MELLITUS [None]
  - DIABETIC KETOACIDOSIS [None]
  - TYPE 2 DIABETES MELLITUS [None]
